FAERS Safety Report 4559019-2 (Version None)
Quarter: 2005Q1

REPORT INFORMATION
  Report Type: 
  Country: None (occurrence: None)
  Receive Date: 20050124
  Receipt Date: 20050110
  Transmission Date: 20050727
  Serious: Yes (Other)
  Sender: FDA-Public Use
  Company Number: DE-JNJFOC-20050102404

PATIENT
  Age: 75 Year
  Sex: Male

DRUGS (18)
  1. REMICADE [Suspect]
     Indication: PYODERMA GANGRENOSUM
     Route: 042
  2. MAGNESIA [Concomitant]
     Dosage: 2 TABLETS TID
  3. DICLOFENAC [Concomitant]
     Route: 049
  4. PHENPROCOUMON [Concomitant]
  5. ESOMEPRAZOL [Concomitant]
     Indication: PROPHYLAXIS
     Route: 049
  6. VALDECOXIB [Concomitant]
     Route: 049
  7. LACTULOSE [Concomitant]
     Indication: ILEUS
     Dosage: 1 TABLESPOON TID
  8. DIGITOXIN TAB [Concomitant]
     Route: 049
  9. RAMIPRIL [Concomitant]
     Indication: HYPERTENSION
     Route: 049
  10. HYDROCHLOROTHIAZID [Concomitant]
     Indication: HYPERTENSION
     Route: 049
  11. METOPROLOLSUCCINAT [Concomitant]
     Indication: HYPERTENSION
     Route: 049
  12. AMITRIPTYLIN [Concomitant]
     Indication: PAIN
     Route: 049
  13. METOCLOPRAMID [Concomitant]
     Route: 049
  14. METAMIZOL [Concomitant]
     Indication: PAIN
  15. CYCLOPHOSPHAMIDE [Concomitant]
  16. VINCRISTINE [Concomitant]
  17. DOXORUBICIN HCL [Concomitant]
  18. PREDNISOLONE [Concomitant]

REACTIONS (3)
  - BACTERIAL INFECTION [None]
  - GANGRENE [None]
  - PYODERMA GANGRENOSUM [None]
